FAERS Safety Report 21978404 (Version 2)
Quarter: 2024Q3

REPORT INFORMATION
  Report Type: Spontaneous
  Country: HR (occurrence: HR)
  Receive Date: 20230210
  Receipt Date: 20240721
  Transmission Date: 20241016
  Serious: Yes (Other)
  Sender: ROCHE
  Company Number: None

PATIENT
  Age: 77 Year
  Sex: Female

DRUGS (4)
  1. OBINUTUZUMAB [Suspect]
     Active Substance: OBINUTUZUMAB
     Indication: Chronic lymphocytic leukaemia
     Dosage: STOP DATE 2022
     Route: 065
     Dates: start: 202207, end: 2022
  2. OBINUTUZUMAB [Suspect]
     Active Substance: OBINUTUZUMAB
     Dosage: DURATION TEXT: 1ST LINE TH; 6TH CYCLE 7DEC2022
     Route: 065
     Dates: start: 20221207, end: 20221207
  3. VENETOCLAX [Suspect]
     Active Substance: VENETOCLAX
     Indication: Chronic lymphocytic leukaemia
     Dosage: DURATION TEXT: 1ST LINE TH; 6TH CYCLE 7DEC2022
     Route: 048
     Dates: start: 202207, end: 20230104
  4. VENETOCLAX [Suspect]
     Active Substance: VENETOCLAX
     Dosage: 1ST LINE TH; 6TH CYCLE
     Route: 065
     Dates: start: 20221207, end: 20221207

REACTIONS (3)
  - Pancreatitis acute [Unknown]
  - Lipase increased [Unknown]
  - Pseudocyst [Unknown]

NARRATIVE: CASE EVENT DATE: 20230104
